FAERS Safety Report 5657996-X (Version None)
Quarter: 2008Q1

REPORT INFORMATION
  Report Type: 
  Country: None (occurrence: None)
  Receive Date: 20080306
  Receipt Date: 20080229
  Transmission Date: 20080703
  Serious: Yes (Death)
  Sender: FDA-Public Use
  Company Number: 163-21880-07111061

PATIENT
  Age: 68 Year
  Sex: Male

DRUGS (3)
  1. REVLIMID [Suspect]
     Indication: LEUKOCYTOSIS
     Dosage: 10 MG, DAILY, ORAL
     Dates: start: 20060401, end: 20070601
  2. REVLIMID [Suspect]
     Indication: MYELODYSPLASTIC SYNDROME
     Dosage: 10 MG, DAILY, ORAL
     Dates: start: 20060401, end: 20070601
  3. REVLIMID [Suspect]
     Indication: SPLENOMEGALY
     Dosage: 10 MG, DAILY, ORAL
     Dates: start: 20060401, end: 20070601

REACTIONS (3)
  - ACUTE LEUKAEMIA [None]
  - MALIGNANT NEOPLASM PROGRESSION [None]
  - MYELODYSPLASTIC SYNDROME [None]
